FAERS Safety Report 13045732 (Version 4)
Quarter: 2017Q1

REPORT INFORMATION
  Report Type: Report from Study
  Country: US (occurrence: US)
  Receive Date: 20161220
  Receipt Date: 20170220
  Transmission Date: 20170428
  Serious: Yes (Death, Hospitalization)
  Sender: FDA-Public Use
  Company Number: US-CORCEPT THERAPEUTICS INC.-US-2016CRT000768

PATIENT

DRUGS (3)
  1. KORLYM [Suspect]
     Active Substance: MIFEPRISTONE
     Indication: ADRENAL DISORDER
     Dosage: SINGLE DOSE POST-OPERATIVELY
     Dates: start: 201612, end: 201612
  2. KORLYM [Suspect]
     Active Substance: MIFEPRISTONE
     Indication: HYPERGLYCAEMIA
  3. KORLYM [Suspect]
     Active Substance: MIFEPRISTONE
     Indication: CUSHING^S SYNDROME
     Dosage: 300 MG, QD
     Route: 048
     Dates: start: 20160930, end: 20161020

REACTIONS (5)
  - Treatment noncompliance [Not Recovered/Not Resolved]
  - Abdominal neoplasm [Unknown]
  - Hernia [Recovering/Resolving]
  - Cardio-respiratory arrest [Fatal]
  - Fall [Fatal]

NARRATIVE: CASE EVENT DATE: 2016
